FAERS Safety Report 16278694 (Version 1)
Quarter: 2019Q2

REPORT INFORMATION
  Report Type: Spontaneous
  Country: NL (occurrence: NL)
  Receive Date: 20190506
  Receipt Date: 20190506
  Transmission Date: 20190711
  Serious: Yes (Life-Threatening, Hospitalization, Other)
  Sender: FDA-Public Use
  Company Number: NL-BAUSCH-BL-2019-012913

PATIENT
  Age: 47 Year
  Sex: Male

DRUGS (1)
  1. DOXYCYCLINE. [Suspect]
     Active Substance: DOXYCYCLINE
     Indication: LYME DISEASE
     Route: 048

REACTIONS (9)
  - Condition aggravated [Recovered/Resolved]
  - Coeliac disease [Recovered/Resolved]
  - Haematuria [Recovered/Resolved]
  - Activated partial thromboplastin time prolonged [Recovered/Resolved]
  - Haematoma [Recovered/Resolved]
  - Normocytic anaemia [Recovered/Resolved]
  - Vitamin K deficiency [Recovered/Resolved]
  - Coagulation factor V level decreased [Recovered/Resolved]
  - Coagulation factor VII level decreased [Recovered/Resolved]
